FAERS Safety Report 14533969 (Version 1)
Quarter: 2018Q1

REPORT INFORMATION
  Report Type: Spontaneous
  Country: US (occurrence: US)
  Receive Date: 20180215
  Receipt Date: 20180215
  Transmission Date: 20180509
  Serious: No
  Sender: FDA-Public Use
  Company Number: US-PFIZER INC-2018058694

PATIENT
  Age: 57 Year
  Sex: Male
  Weight: 104.3 kg

DRUGS (1)
  1. FLECTOR [Suspect]
     Active Substance: DICLOFENAC EPOLAMINE
     Indication: DIABETIC NEUROPATHY
     Dosage: UNK UNK, 2X/DAY
     Dates: start: 20180201

REACTIONS (6)
  - Intentional product misuse [Unknown]
  - Application site oedema [Unknown]
  - Wrong technique in product usage process [Unknown]
  - Peripheral swelling [Unknown]
  - Application site pruritus [Unknown]
  - Product use in unapproved indication [Unknown]

NARRATIVE: CASE EVENT DATE: 20180207
